FAERS Safety Report 16492724 (Version 1)
Quarter: 2019Q2

REPORT INFORMATION
  Report Type: Spontaneous
  Country: US (occurrence: US)
  Receive Date: 20190518
  Receipt Date: 20190518
  Transmission Date: 20190711
  Serious: Yes (Hospitalization)
  Sender: FDA-Public Use
  Company Number: None

PATIENT
  Age: 64 Year
  Sex: Female
  Weight: 61.2 kg

DRUGS (3)
  1. LENALIDOMIDE (CC-5013) [Suspect]
     Active Substance: LENALIDOMIDE
     Dates: end: 20190428
  2. VELCADE [Suspect]
     Active Substance: BORTEZOMIB
     Dates: end: 20190425
  3. DEXAMETHASONE. [Suspect]
     Active Substance: DEXAMETHASONE
     Dates: end: 20190426

REACTIONS (4)
  - Hypokalaemia [None]
  - Pneumonia [None]
  - Lung disorder [None]
  - Lung infection [None]

NARRATIVE: CASE EVENT DATE: 20190506
